FAERS Safety Report 4279919-0 (Version None)
Quarter: 2004Q1

REPORT INFORMATION
  Report Type: 
  Country: None (occurrence: None)
  Receive Date: 20040126
  Receipt Date: 20040112
  Transmission Date: 20041129
  Serious: Yes (Disabling)
  Sender: FDA-Public Use
  Company Number: GB-JNJFOC-20040101913

PATIENT
  Age: 8 Year
  Sex: Female
  Weight: 25 kg

DRUGS (2)
  1. CONCERTA [Suspect]
     Dosage: 36 MG, ORAL
     Route: 048
     Dates: start: 20030618, end: 20031117
  2. RITALIN [Concomitant]

REACTIONS (1)
  - ALOPECIA [None]
